FAERS Safety Report 8275795-X (Version None)
Quarter: 2012Q2

REPORT INFORMATION
  Report Type: 
  Country: None (occurrence: None)
  Receive Date: 20120410
  Receipt Date: 20120410
  Transmission Date: 20120825
  Serious: Yes (Life-Threatening, Hospitalization)
  Sender: FDA-Public Use
  Company Number: None

PATIENT
  Age: 62 Year
  Sex: Male
  Weight: 107.3 kg

DRUGS (1)
  1. WARFARIN SODIUM [Suspect]
     Indication: ATRIAL FIBRILLATION
     Dosage: 2.5 MG HS PO
     Route: 048
     Dates: start: 20110727, end: 20110807

REACTIONS (9)
  - BLUE TOE SYNDROME [None]
  - FAT EMBOLISM [None]
  - SEPTIC EMBOLUS [None]
  - ECCHYMOSIS [None]
  - CALCIPHYLAXIS [None]
  - WOUND NECROSIS [None]
  - SKIN NECROSIS [None]
  - COAGULOPATHY [None]
  - POST PROCEDURAL COMPLICATION [None]
